FAERS Safety Report 9742990 (Version 2)
Quarter: 2013Q4

REPORT INFORMATION
  Report Type: Spontaneous
  Country: FR (occurrence: FR)
  Receive Date: 20131210
  Receipt Date: 20131226
  Transmission Date: 20140711
  Serious: Yes (Hospitalization, Congenital Anomaly, Other)
  Sender: FDA-Public Use
  Company Number: FR-PFIZER INC-2013348704

PATIENT
  Sex: Female

DRUGS (7)
  1. NEURONTIN [Suspect]
     Indication: NEURALGIA
     Dosage: 600 MG, DAILY
     Route: 064
  2. TRAMADOL HCL [Suspect]
     Dosage: 100 MG, DAILY
     Route: 064
  3. TRAMADOL HCL [Suspect]
     Dosage: 1 TABLET IN THE EVENING
     Route: 064
  4. SERESTA [Suspect]
     Indication: ALCOHOL WITHDRAWAL SYNDROME
     Dosage: 25 MG, 3X/DAY
     Route: 064
  5. DOLIPRANE [Suspect]
     Indication: NEURALGIA
     Dosage: 3 G, DAILY
     Route: 064
  6. ATENOLOL [Suspect]
     Dosage: 50 MG
     Route: 064
  7. FOLIC ACID [Concomitant]
     Dosage: UNK
     Route: 064

REACTIONS (6)
  - Maternal exposure during pregnancy [Unknown]
  - Neuroblastoma [Recovered/Resolved with Sequelae]
  - Talipes [Recovered/Resolved]
  - Foetal malnutrition [Recovered/Resolved]
  - Spinal cord compression [Unknown]
  - Weight decrease neonatal [Unknown]
